FAERS Safety Report 16531984 (Version 1)
Quarter: 2019Q3

REPORT INFORMATION
  Report Type: Spontaneous
  Country: US (occurrence: US)
  Receive Date: 20190703
  Receipt Date: 20190703
  Transmission Date: 20191004
  Serious: No
  Sender: FDA-Public Use
  Company Number: None

PATIENT
  Age: 90 Year
  Sex: Female

DRUGS (2)
  1. AZITHROMCYIN 500MG IV [Concomitant]
     Dates: start: 20190701
  2. CEFTRIAXONE. [Suspect]
     Active Substance: CEFTRIAXONE
     Route: 042
     Dates: start: 20190702, end: 20190702

REACTIONS (3)
  - Rash pruritic [None]
  - Drug hypersensitivity [None]
  - Rash papular [None]

NARRATIVE: CASE EVENT DATE: 20190702
